FAERS Safety Report 18398566 (Version 1)
Quarter: 2020Q4

REPORT INFORMATION
  Report Type: Spontaneous
  Country: US (occurrence: US)
  Receive Date: 20201019
  Receipt Date: 20201019
  Transmission Date: 20210114
  Serious: Yes (Hospitalization)
  Sender: FDA-Public Use
  Company Number: None

PATIENT
  Age: 68 Year
  Sex: Female
  Weight: 91.8 kg

DRUGS (1)
  1. TEMOZOLOMIDE (362856) [Suspect]
     Active Substance: TEMOZOLOMIDE
     Dates: end: 20200901

REACTIONS (2)
  - Postictal state [None]
  - Seizure [None]

NARRATIVE: CASE EVENT DATE: 20200921
